FAERS Safety Report 13538163 (Version 1)
Quarter: 2017Q2

REPORT INFORMATION
  Report Type: Spontaneous
  Country: CA (occurrence: CA)
  Receive Date: 20170512
  Receipt Date: 20170512
  Transmission Date: 20170830
  Serious: Yes (Other)
  Sender: FDA-Public Use
  Company Number: CA-JNJFOC-20170506653

PATIENT
  Age: 14 Year
  Sex: Male
  Weight: 65 kg

DRUGS (5)
  1. NPH INSULIN [Concomitant]
     Active Substance: INSULIN BEEF
     Route: 058
  2. IMODIUM [Suspect]
     Active Substance: LOPERAMIDE HYDROCHLORIDE
     Indication: PRODUCT USED FOR UNKNOWN INDICATION
     Route: 048
  3. INSULIN [Concomitant]
     Active Substance: INSULIN NOS
     Route: 058
  4. NPH INSULIN [Concomitant]
     Active Substance: INSULIN BEEF
     Route: 058
  5. IMODIUM [Suspect]
     Active Substance: LOPERAMIDE HYDROCHLORIDE
     Route: 048

REACTIONS (1)
  - Hypoglycaemia [Recovered/Resolved]
